FAERS Safety Report 6969683-6 (Version None)
Quarter: 2010Q3

REPORT INFORMATION
  Report Type: 
  Country: None (occurrence: None)
  Receive Date: 20100908
  Receipt Date: 20100901
  Transmission Date: 20110219
  Serious: No
  Sender: FDA-Public Use
  Company Number: US-BAYER-201032509NA

PATIENT
  Age: 27 Year
  Sex: Female

DRUGS (2)
  1. MIRENA [Suspect]
     Indication: CONTRACEPTION
     Dosage: CONTINUOUS
     Route: 015
     Dates: start: 20100824
  2. IBUPROFEN [Concomitant]
     Indication: PAIN

REACTIONS (6)
  - ABDOMINAL PAIN [None]
  - DEVICE DISLOCATION [None]
  - GENITAL HAEMORRHAGE [None]
  - IRRITABILITY [None]
  - PRURITUS [None]
  - SWELLING [None]
